FAERS Safety Report 4845984-2 (Version None)
Quarter: 2005Q4

REPORT INFORMATION
  Report Type: 
  Country: None (occurrence: None)
  Receive Date: 20051206
  Receipt Date: 20051124
  Transmission Date: 20060501
  Serious: Yes (Hospitalization)
  Sender: FDA-Public Use
  Company Number: JP-JNJFOC-20051001562

PATIENT
  Sex: Female
  Weight: 62 kg

DRUGS (22)
  1. REMICADE [Suspect]
     Route: 042
  2. REMICADE [Suspect]
     Route: 042
  3. REMICADE [Suspect]
     Route: 042
  4. REMICADE [Suspect]
     Indication: RHEUMATOID ARTHRITIS
     Route: 042
  5. RHEUMATREX [Suspect]
     Route: 048
  6. RHEUMATREX [Suspect]
     Route: 048
  7. RHEUMATREX [Suspect]
     Route: 048
  8. RHEUMATREX [Suspect]
     Indication: RHEUMATOID ARTHRITIS
     Route: 048
  9. PREDONINE [Suspect]
     Route: 048
  10. PREDONINE [Suspect]
     Route: 048
  11. PREDONINE [Suspect]
     Indication: RHEUMATOID ARTHRITIS
     Route: 048
  12. AZULFIDINE-EN [Suspect]
     Indication: RHEUMATOID ARTHRITIS
     Route: 048
  13. NEUER [Concomitant]
     Route: 048
  14. GASTER [Concomitant]
     Route: 048
  15. ALFAROL [Concomitant]
     Route: 048
  16. AMLODIPINE BESYLATE [Concomitant]
     Route: 048
  17. NITOROL R [Concomitant]
     Route: 048
  18. TENORMIN [Concomitant]
     Route: 048
  19. BLOPRESS [Concomitant]
     Route: 048
  20. ASPIRIN [Concomitant]
     Route: 048
  21. ALDOMET [Concomitant]
     Route: 048
  22. FERO-GRADUMET [Concomitant]
     Route: 048

REACTIONS (3)
  - DRUG INTERACTION [None]
  - PNEUMOCYSTIS JIROVECI PNEUMONIA [None]
  - RENAL IMPAIRMENT [None]
